FAERS Safety Report 19871244 (Version 1)
Quarter: 2021Q3

REPORT INFORMATION
  Report Type: Report from Study
  Country: None (occurrence: CA)
  Receive Date: 20210923
  Receipt Date: 20210923
  Transmission Date: 20211014
  Serious: Yes (Other)
  Sender: FDA-Public Use
  Company Number: CA-ABBVIE-21K-028-4087805-00

PATIENT
  Sex: Female

DRUGS (2)
  1. RINVOQ [Suspect]
     Active Substance: UPADACITINIB
     Route: 048
     Dates: start: 2021, end: 2021
  2. RINVOQ [Suspect]
     Active Substance: UPADACITINIB
     Indication: RHEUMATOID ARTHRITIS
     Route: 048
     Dates: start: 20210428, end: 2021

REACTIONS (6)
  - Drug ineffective [Unknown]
  - Surgery [Unknown]
  - Adverse drug reaction [Unknown]
  - Diarrhoea [Unknown]
  - Pollakiuria [Unknown]
  - Headache [Unknown]

NARRATIVE: CASE EVENT DATE: 2021
